FAERS Safety Report 16803607 (Version 1)
Quarter: 2019Q3

REPORT INFORMATION
  Report Type: Spontaneous
  Country: PT (occurrence: PT)
  Receive Date: 20190913
  Receipt Date: 20190913
  Transmission Date: 20191005
  Serious: Yes (Other)
  Sender: FDA-Public Use
  Company Number: PT-AUROBINDO-AUR-APL-2019-059719

PATIENT
  Age: 29 Year
  Sex: Female

DRUGS (4)
  1. ARIPIPRAZOLE TABLETS [Suspect]
     Active Substance: ARIPIPRAZOLE
     Indication: DELUSIONAL DISORDER, UNSPECIFIED TYPE
     Dosage: 20 MG, QD
     Route: 048
  2. ABILIFY MAINTENA [Suspect]
     Active Substance: ARIPIPRAZOLE
     Indication: DELUSIONAL DISORDER, UNSPECIFIED TYPE
     Dosage: 400 MG, EVERY MONTH
     Route: 065
  3. ARIPIPRAZOLE TABLETS [Suspect]
     Active Substance: ARIPIPRAZOLE
     Dosage: 2.5 MG, QD
     Route: 048
  4. OLANZAPINE. [Suspect]
     Active Substance: OLANZAPINE
     Indication: DELUSIONAL DISORDER, UNSPECIFIED TYPE
     Dosage: 20 MG, QD
     Route: 048

REACTIONS (6)
  - Hallucination, olfactory [Recovering/Resolving]
  - Impaired quality of life [Recovered/Resolved]
  - Product use in unapproved indication [Unknown]
  - Delusion [Recovering/Resolving]
  - Hyperprolactinaemia [Recovered/Resolved]
  - Symptom recurrence [Recovering/Resolving]
